FAERS Safety Report 16151882 (Version 2)
Quarter: 2019Q2

REPORT INFORMATION
  Report Type: Spontaneous
  Country: DE (occurrence: DE)
  Receive Date: 20190403
  Receipt Date: 20190412
  Transmission Date: 20190711
  Serious: Yes (Hospitalization, Other)
  Sender: FDA-Public Use
  Company Number: DE-AUROBINDO-AUR-APL-2019-016671

PATIENT

DRUGS (3)
  1. QUILONUM [Suspect]
     Active Substance: LITHIUM
     Indication: SCHIZOAFFECTIVE DISORDER
     Dosage: 1.12 GRAM, ONCE A DAY
     Route: 065
     Dates: start: 1992
  2. RAMIPRIL. [Suspect]
     Active Substance: RAMIPRIL
     Indication: HYPERTENSION
     Dosage: 10 MILLIGRAM
     Route: 065
     Dates: start: 2006, end: 2008
  3. RAMIPRIL. [Suspect]
     Active Substance: RAMIPRIL
     Dosage: 5 MILLIGRAM
     Route: 065
     Dates: start: 2008

REACTIONS (10)
  - Dysmetria [Unknown]
  - Toxicity to various agents [Unknown]
  - Hyperreflexia [Unknown]
  - Depression [Recovered/Resolved]
  - Social avoidant behaviour [Recovered/Resolved]
  - Immobile [Recovered/Resolved]
  - Aphasia [Unknown]
  - Somnolence [Unknown]
  - Psychomotor retardation [Recovered/Resolved]
  - Antipsychotic drug level increased [Recovered/Resolved]
